FAERS Safety Report 23368579 (Version 1)
Quarter: 2024Q1

REPORT INFORMATION
  Report Type: Spontaneous
  Country: DE (occurrence: DE)
  Receive Date: 20240105
  Receipt Date: 20240105
  Transmission Date: 20240409
  Serious: Yes (Hospitalization, Disabling, Other)
  Sender: FDA-Public Use
  Company Number: DE-ROCHE-3450787

PATIENT
  Sex: Male
  Weight: 80 kg

DRUGS (7)
  1. ACYCLOVIR [Suspect]
     Active Substance: ACYCLOVIR
     Indication: Product used for unknown indication
     Dosage: UNK, TWO TIMES A DAY
     Route: 048
  2. RAMIPRIL [Suspect]
     Active Substance: RAMIPRIL
     Indication: Product used for unknown indication
     Dosage: UNK
     Route: 048
  3. BISOPROLOL [Suspect]
     Active Substance: BISOPROLOL\BISOPROLOL FUMARATE
     Indication: Product used for unknown indication
     Dosage: UNK
     Route: 048
  4. AMLODIPINE [Suspect]
     Active Substance: AMLODIPINE BESYLATE
     Indication: Product used for unknown indication
     Dosage: UNK
     Route: 048
  5. OBINUTUZUMAB [Suspect]
     Active Substance: OBINUTUZUMAB
     Indication: Chronic lymphocytic leukaemia
     Dosage: UNK 4 WEEK
     Route: 042
     Dates: end: 20231004
  6. VENETOCLAX [Suspect]
     Active Substance: VENETOCLAX
     Indication: Product used for unknown indication
     Dosage: UNK, ONCE A DAY
     Route: 048
     Dates: end: 20231004
  7. COTRIMOXAZOLE [Suspect]
     Active Substance: SULFAMETHOXAZOLE\TRIMETHOPRIM
     Indication: Product used for unknown indication
     Dosage: UNK (ON MONDAY / WEDNESDAY / FRIDAY)
     Route: 048

REACTIONS (8)
  - Chronic lymphocytic leukaemia [Not Recovered/Not Resolved]
  - Lymphocytic leukaemia [Not Recovered/Not Resolved]
  - Pseudomonal sepsis [Not Recovered/Not Resolved]
  - Ecthyma [Not Recovered/Not Resolved]
  - Impaired healing [Not Recovered/Not Resolved]
  - Lung infiltration [Not Recovered/Not Resolved]
  - Cough [Not Recovered/Not Resolved]
  - Lung disorder [Not Recovered/Not Resolved]
